FAERS Safety Report 14033433 (Version 1)
Quarter: 2017Q4

REPORT INFORMATION
  Report Type: Spontaneous
  Country: US (occurrence: US)
  Receive Date: 20171002
  Receipt Date: 20171002
  Transmission Date: 20180321
  Serious: Yes (Disabling)
  Sender: FDA-Public Use
  Company Number: None

PATIENT
  Age: 66 Year
  Sex: Female
  Weight: 99 kg

DRUGS (2)
  1. ZANTAC [Suspect]
     Active Substance: RANITIDINE HYDROCHLORIDE
     Indication: HYPERSENSITIVITY
     Dosage: ?          QUANTITY:1 TABLET(S);?
     Route: 048
     Dates: start: 20170925, end: 20170929
  2. SYNTHROID [Concomitant]
     Active Substance: LEVOTHYROXINE SODIUM

REACTIONS (1)
  - Arthralgia [None]

NARRATIVE: CASE EVENT DATE: 20170929
